FAERS Safety Report 7365753-1 (Version None)
Quarter: 2011Q1

REPORT INFORMATION
  Report Type: 
  Country: None (occurrence: None)
  Receive Date: 20110322
  Receipt Date: 20110316
  Transmission Date: 20110831
  Serious: No
  Sender: FDA-Public Use
  Company Number: US-PFIZER INC-2011058342

PATIENT
  Sex: Female
  Weight: 54 kg

DRUGS (2)
  1. XALATAN [Suspect]
     Indication: GLAUCOMA
     Dosage: ONE DROP, 1X/DAY, IN EACH EYE
     Route: 047
     Dates: start: 20100601
  2. POTASSIUM [Concomitant]
     Dosage: UNK

REACTIONS (4)
  - GROWTH OF EYELASHES [None]
  - VISUAL IMPAIRMENT [None]
  - DRY EYE [None]
  - FOREIGN BODY IN EYE [None]
